FAERS Safety Report 5815995-9 (Version None)
Quarter: 2008Q3

REPORT INFORMATION
  Report Type: 
  Country: None (occurrence: None)
  Receive Date: 20080721
  Receipt Date: 20080711
  Transmission Date: 20090109
  Serious: Yes (Other)
  Sender: FDA-Public Use
  Company Number: PHHY2008JP12499

PATIENT
  Age: 81 Year
  Sex: Male

DRUGS (5)
  1. VOLTAREN [Suspect]
     Indication: BACK PAIN
     Dosage: UNK
     Route: 048
     Dates: start: 20080626, end: 20080627
  2. LOXONIN [Concomitant]
     Dosage: UNK
     Dates: start: 20080626, end: 20080627
  3. ALLOPURINOL [Concomitant]
     Dosage: UNK
     Dates: start: 20030806
  4. SERMION [Concomitant]
     Dosage: UNK
     Route: 048
     Dates: start: 20030806
  5. MARZULENE [Concomitant]
     Dosage: 2 G DAILY
     Route: 048

REACTIONS (2)
  - AGRANULOCYTOSIS [None]
  - WHITE BLOOD CELL COUNT DECREASED [None]
